FAERS Safety Report 8280097-1 (Version None)
Quarter: 2012Q2

REPORT INFORMATION
  Report Type: 
  Country: None (occurrence: None)
  Receive Date: 20120412
  Receipt Date: 20110928
  Transmission Date: 20120825
  Serious: No
  Sender: FDA-Public Use
  Company Number: US-ASTRAZENECA-2011SE53671

PATIENT
  Age: 64 Year
  Sex: Female

DRUGS (3)
  1. PRILOSEC OTC [Suspect]
     Route: 048
  2. NEXIUM [Suspect]
     Route: 048
  3. ASACOL [Concomitant]

REACTIONS (11)
  - NAUSEA [None]
  - MALAISE [None]
  - URINARY TRACT INFECTION [None]
  - APHAGIA [None]
  - OESOPHAGITIS [None]
  - DYSPEPSIA [None]
  - GASTRITIS [None]
  - VOMITING [None]
  - WEIGHT DECREASED [None]
  - STOMATITIS [None]
  - DRUG DOSE OMISSION [None]
